FAERS Safety Report 23630162 (Version 1)
Quarter: 2024Q1

REPORT INFORMATION
  Report Type: Spontaneous
  Country: US (occurrence: US)
  Receive Date: 20240314
  Receipt Date: 20240314
  Transmission Date: 20240410
  Serious: No
  Sender: FDA-Public Use
  Company Number: US-TARO PHARMACEUTICALS USA INC.-2023TAR00346

PATIENT

DRUGS (2)
  1. TRETINOIN [Suspect]
     Active Substance: TRETINOIN
     Indication: Acne
     Dosage: UNK, AS PER LABEL, ALTERNATE DAYS, ON THE FACE
     Route: 061
     Dates: start: 202303
  2. TRETINOIN [Suspect]
     Active Substance: TRETINOIN
     Indication: Skin disorder

REACTIONS (2)
  - Application site discolouration [Unknown]
  - Application site swelling [Unknown]
